FAERS Safety Report 6307708-1 (Version None)
Quarter: 2009Q3

REPORT INFORMATION
  Report Type: 
  Country: None (occurrence: None)
  Receive Date: 20090812
  Receipt Date: 20090812
  Transmission Date: 20100115
  Serious: Yes (Other)
  Sender: FDA-Public Use
  Company Number: None

PATIENT
  Sex: Female
  Weight: 68.0396 kg

DRUGS (1)
  1. DIOVAN HCT [Suspect]
     Indication: HYPERTENSION
     Dosage: 160/12.5 MG QD PO
     Route: 048
     Dates: start: 20090325, end: 20090708

REACTIONS (6)
  - ABDOMINAL PAIN [None]
  - BURNING SENSATION [None]
  - HAEMORRHOIDS [None]
  - HYPOAESTHESIA [None]
  - PARAESTHESIA [None]
  - SKIN FISSURES [None]
